FAERS Safety Report 10426917 (Version 1)
Quarter: 2014Q3

REPORT INFORMATION
  Report Type: Spontaneous
  Country: US (occurrence: None)
  Receive Date: 20140902
  Receipt Date: 20140902
  Transmission Date: 20150326
  Serious: Yes (Other)
  Sender: FDA-Public Use
  Company Number: None

PATIENT
  Age: 47 Year
  Sex: Female
  Weight: 77.11 kg

DRUGS (2)
  1. TAMOXIFEN CITRATE. [Suspect]
     Active Substance: TAMOXIFEN CITRATE
     Indication: PROPHYLAXIS
     Dosage: 1PILL, ONCE DAILY, TAKEN BY MOUTH
     Route: 048
     Dates: start: 20140423, end: 20140830
  2. TAMOXIFEN CITRATE. [Suspect]
     Active Substance: TAMOXIFEN CITRATE
     Indication: BREAST CANCER
     Dosage: 1PILL, ONCE DAILY, TAKEN BY MOUTH
     Route: 048
     Dates: start: 20140423, end: 20140830

REACTIONS (1)
  - Tendon pain [None]

NARRATIVE: CASE EVENT DATE: 20140705
